FAERS Safety Report 8505247-0 (Version None)
Quarter: 2012Q3

REPORT INFORMATION
  Report Type: 
  Country: None (occurrence: None)
  Receive Date: 20120712
  Receipt Date: 20120710
  Transmission Date: 20120928
  Serious: Yes (Other)
  Sender: FDA-Public Use
  Company Number: BR-PFIZER INC-2012166126

PATIENT
  Age: 23 Year
  Sex: Female

DRUGS (4)
  1. VARENICLINE TARTRATE [Suspect]
     Dosage: 1 MG, 1X/DAY (2 TABLETS STRENGTH 0.5MG 1X/DAY)
     Route: 048
     Dates: start: 20120704, end: 20120707
  2. VARENICLINE TARTRATE [Suspect]
     Dosage: 1 MG EVERY 12 HOURS
     Route: 048
     Dates: start: 20120710
  3. VARENICLINE TARTRATE [Suspect]
     Dosage: 2 MG, 1X/DAY
     Route: 048
     Dates: start: 20120708, end: 20120709
  4. VARENICLINE TARTRATE [Suspect]
     Indication: SMOKING CESSATION THERAPY
     Dosage: 0.5 MG, 1X/DAY (AT NIGHT)
     Route: 048
     Dates: start: 20120701, end: 20120703

REACTIONS (1)
  - MENTAL DISORDER [None]
